FAERS Safety Report 23161325 (Version 2)
Quarter: 2023Q4

REPORT INFORMATION
  Report Type: Spontaneous
  Country: AU (occurrence: AU)
  Receive Date: 20231108
  Receipt Date: 20231228
  Transmission Date: 20240109
  Serious: Yes (Other)
  Sender: FDA-Public Use
  Company Number: AU-BAUSCHBL-2023BNL011040

PATIENT
  Age: 54 Year
  Sex: Female

DRUGS (7)
  1. ATROPINE [Suspect]
     Active Substance: ATROPINE\ATROPINE SULFATE
     Indication: Product used for unknown indication
     Route: 065
  2. SACITUZUMAB GOVITECAN [Suspect]
     Active Substance: SACITUZUMAB GOVITECAN
     Indication: Product used for unknown indication
     Route: 065
  3. ASPIRIN [Concomitant]
     Active Substance: ASPIRIN
     Indication: Product used for unknown indication
  4. TRASTUZUMAB [Concomitant]
     Active Substance: TRASTUZUMAB
     Indication: Product used for unknown indication
  5. CAPECITABINE [Concomitant]
     Active Substance: CAPECITABINE
     Indication: Product used for unknown indication
  6. HYDROCORTISONE [Concomitant]
     Active Substance: HYDROCORTISONE
     Indication: Product used for unknown indication
  7. METHYLPREDNISOLONE SODIUM SUCCINATE [Concomitant]
     Active Substance: METHYLPREDNISOLONE SODIUM SUCCINATE
     Indication: Product used for unknown indication

REACTIONS (23)
  - Thrombosis [Unknown]
  - Skin cancer [Unknown]
  - Asthenia [Unknown]
  - Chest discomfort [Unknown]
  - Fatigue [Unknown]
  - Heart rate increased [Unknown]
  - Hypertension [Unknown]
  - Ill-defined disorder [Unknown]
  - Infusion related reaction [Unknown]
  - Lymphadenopathy [Unknown]
  - Malaise [Unknown]
  - Nausea [Unknown]
  - Neoplasm [Unknown]
  - Retching [Unknown]
  - Skin mass [Unknown]
  - Throat irritation [Unknown]
  - Constipation [Unknown]
  - Oxygen saturation decreased [Unknown]
  - Weight fluctuation [Unknown]
  - Inappropriate schedule of product administration [Unknown]
  - Rash [Unknown]
  - Off label use [Unknown]
  - Product administration error [Unknown]
